FAERS Safety Report 20896767 (Version 1)
Quarter: 2022Q2

REPORT INFORMATION
  Report Type: Spontaneous
  Country: US (occurrence: US)
  Receive Date: 20220531
  Receipt Date: 20220531
  Transmission Date: 20220720
  Serious: No
  Sender: FDA-Public Use
  Company Number: US-SUNOVION-2022SUN001617

PATIENT
  Age: 57 Year
  Sex: Female

DRUGS (1)
  1. LATUDA [Suspect]
     Active Substance: LURASIDONE HYDROCHLORIDE
     Dosage: 40 MG, QD
     Route: 048

REACTIONS (6)
  - Feeling abnormal [Unknown]
  - Mental disorder [Unknown]
  - Mania [Unknown]
  - Psychotic disorder [Unknown]
  - Insomnia [Unknown]
  - Therapy interrupted [Unknown]
